FAERS Safety Report 14543547 (Version 1)
Quarter: 2018Q1

REPORT INFORMATION
  Report Type: Spontaneous
  Country: CA (occurrence: CA)
  Receive Date: 20180216
  Receipt Date: 20180216
  Transmission Date: 20180509
  Serious: Yes (Other)
  Sender: FDA-Public Use
  Company Number: CA-TEVA-2018-CA-857860

PATIENT
  Sex: Female

DRUGS (4)
  1. NEXIUM - 40MG [Concomitant]
  2. RATIO-FLUTICASONE [Suspect]
     Active Substance: FLUTICASONE
     Dosage: METERED-DOSE (PUMP)
  3. DOMPERIDONE MALEATE [Concomitant]
     Active Substance: DOMPERIDONE MALEATE
  4. REACTINE [Concomitant]
     Active Substance: CETIRIZINE HYDROCHLORIDE

REACTIONS (9)
  - Dyspnoea [Recovered/Resolved]
  - Pharyngeal oedema [Recovered/Resolved]
  - Hypersensitivity [Recovered/Resolved]
  - Throat irritation [Recovered/Resolved]
  - Blood pressure increased [Recovered/Resolved]
  - Respiratory rate increased [Recovered/Resolved]
  - Heart rate increased [Recovered/Resolved]
  - Pruritus [Recovered/Resolved]
  - Tremor [Recovered/Resolved]
